FAERS Safety Report 21369199 (Version 2)
Quarter: 2022Q4

REPORT INFORMATION
  Report Type: Spontaneous
  Country: US (occurrence: US)
  Receive Date: 20220923
  Receipt Date: 20221001
  Transmission Date: 20230112
  Serious: Yes (Other)
  Sender: FDA-Public Use
  Company Number: US-drreddys-SPO/USA/22/0154816

PATIENT
  Age: 63 Year
  Sex: Female

DRUGS (16)
  1. AMIODARONE HYDROCHLORIDE [Suspect]
     Active Substance: AMIODARONE HYDROCHLORIDE
     Indication: Atrial fibrillation
  2. DILTIAZEM HYDROCHLORIDE [Concomitant]
     Active Substance: DILTIAZEM HYDROCHLORIDE
     Indication: Tachycardia
  3. ADENOSINE [Concomitant]
     Active Substance: ADENOSINE
     Indication: Tachycardia
  4. DABIGATRAN [Concomitant]
     Active Substance: DABIGATRAN
     Indication: Atrial fibrillation
  5. TRAZODONE [Concomitant]
     Active Substance: TRAZODONE HYDROCHLORIDE
     Indication: Major depression
     Dosage: AT BEDTIME
  6. TRAZODONE [Concomitant]
     Active Substance: TRAZODONE HYDROCHLORIDE
     Indication: Anxiety disorder
  7. DULOXETINE [Concomitant]
     Active Substance: DULOXETINE
     Indication: Anxiety disorder
  8. DULOXETINE [Concomitant]
     Active Substance: DULOXETINE
     Indication: Major depression
  9. ADENOSINE [Concomitant]
     Active Substance: ADENOSINE
     Indication: Tachycardia
  10. ANASTROZOLE [Concomitant]
     Active Substance: ANASTROZOLE
     Indication: Hormone receptor positive breast cancer
  11. ANASTROZOLE [Concomitant]
     Active Substance: ANASTROZOLE
     Indication: Hormone receptor positive breast cancer
  12. ANASTROZOLE [Concomitant]
     Active Substance: ANASTROZOLE
     Indication: Invasive ductal breast carcinoma
  13. ANASTROZOLE [Concomitant]
     Active Substance: ANASTROZOLE
     Indication: Metastases to bone
  14. ANASTROZOLE [Concomitant]
     Active Substance: ANASTROZOLE
     Indication: HER2 positive breast cancer
  15. BUPROPION [Concomitant]
     Active Substance: BUPROPION
     Indication: Major depression
  16. BUPROPION [Concomitant]
     Active Substance: BUPROPION
     Indication: Anxiety disorder

REACTIONS (2)
  - Hallucination, visual [Recovered/Resolved]
  - Hallucination, auditory [Recovered/Resolved]
